FAERS Safety Report 7979338-7 (Version None)
Quarter: 2011Q4

REPORT INFORMATION
  Report Type: 
  Country: None (occurrence: None)
  Receive Date: 20111214
  Receipt Date: 20111208
  Transmission Date: 20120403
  Serious: Yes (Death, Hospitalization)
  Sender: FDA-Public Use
  Company Number: US-GENZYME-MOZO-1000587

PATIENT
  Sex: Male

DRUGS (3)
  1. MOZOBIL [Suspect]
     Indication: HAEMATOPOIETIC STEM CELL MOBILISATION
     Dosage: UNK
     Route: 042
     Dates: start: 20110101, end: 20110101
  2. MOZOBIL [Suspect]
     Indication: ACUTE MYELOID LEUKAEMIA
  3. DECITABINE [Concomitant]
     Indication: ACUTE MYELOID LEUKAEMIA
     Dosage: 20 MG/M2, QD
     Route: 042
     Dates: start: 20110101, end: 20111006

REACTIONS (4)
  - PSEUDOMONAL SEPSIS [None]
  - MULTI-ORGAN FAILURE [None]
  - FEBRILE NEUTROPENIA [None]
  - RESPIRATORY FAILURE [None]
